FAERS Safety Report 8766924 (Version 3)
Quarter: 2012Q4

REPORT INFORMATION
  Report Type: 
  Country: FR (occurrence: FR)
  Receive Date: 20120904
  Receipt Date: 20121123
  Transmission Date: 20130627
  Serious: Yes (Death, Hospitalization)
  Sender: FDA-Public Use
  Company Number: FR-PFIZER INC-2012213861

PATIENT
  Age: 64 Year
  Sex: Male

DRUGS (12)
  1. ZYVOXID [Suspect]
     Indication: FEBRILE APLASIA
     Dosage: 600 mg, 2x/day
     Dates: start: 20120808, end: 20120822
  2. VFEND [Suspect]
     Indication: CANDIDA ALBICANS INFECTION
     Dosage: 200 mg, 2x/day
     Dates: start: 20120808, end: 20120820
  3. TRIFLUCAN [Suspect]
     Indication: CANDIDA ALBICANS INFECTION
     Dosage: 400 mg, 1x/day
     Dates: start: 20120821
  4. TAZOCILLINE [Suspect]
     Indication: FEBRILE APLASIA
     Dosage: 4 g, 3x/day
     Route: 042
     Dates: start: 20120808, end: 20120822
  5. AMIKLIN [Suspect]
     Indication: FEBRILE APLASIA
     Dosage: UNK
     Route: 042
     Dates: start: 20120810
  6. KARDEGIC [Concomitant]
     Dosage: 75 mg, 1x/day
  7. COTAREG [Concomitant]
  8. NEBIVOLOL [Concomitant]
  9. LERCAN [Concomitant]
     Dosage: 10 mg once per day
  10. INEXIUM [Concomitant]
     Dosage: 20 mg, 1x/day
  11. IXPRIM [Concomitant]
  12. CRESTOR [Concomitant]
     Dosage: 10 mg once per day

REACTIONS (4)
  - T-cell lymphoma [Fatal]
  - Pancytopenia [Fatal]
  - Candidiasis [Fatal]
  - Pyrexia [Fatal]
